FAERS Safety Report 7377734-2 (Version None)
Quarter: 2011Q1

REPORT INFORMATION
  Report Type: 
  Country: None (occurrence: None)
  Receive Date: 20110315
  Receipt Date: 20110224
  Transmission Date: 20110831
  Serious: Yes (Hospitalization)
  Sender: FDA-Public Use
  Company Number: 11-ADE-SU-0020-ACT

PATIENT
  Age: 12 Month
  Sex: Male
  Weight: 8 kg

DRUGS (4)
  1. VALPROIC ACID [Concomitant]
  2. ZANTAC [Concomitant]
  3. H P ACTHAR [Suspect]
     Indication: INFANTILE SPASMS
     Dosage: 30 IU IM BID WITH TAPER
     Dates: start: 20110127, end: 20110210
  4. ALBUTEROL [Concomitant]

REACTIONS (1)
  - HYPERTHERMIA MALIGNANT [None]
